FAERS Safety Report 20631716 (Version 1)
Quarter: 2022Q1

REPORT INFORMATION
  Report Type: Spontaneous
  Country: US (occurrence: None)
  Receive Date: 20220324
  Receipt Date: 20220324
  Transmission Date: 20220423
  Serious: Yes (Hospitalization)
  Sender: FDA-Public Use
  Company Number: None

PATIENT
  Sex: Male

DRUGS (2)
  1. DEFERASIROX [Suspect]
     Active Substance: DEFERASIROX
     Indication: Sickle cell disease
     Dosage: 1000MG DAILY ORAL?
     Route: 048
     Dates: start: 20190312
  2. ADAKVEO [Suspect]
     Active Substance: CRIZANLIZUMAB-TMCA
     Indication: Sickle cell disease
     Dosage: 298MG EVERY 4 WEEKS INTRAVENOUS?
     Route: 042
     Dates: start: 20210707

REACTIONS (2)
  - Sickle cell anaemia with crisis [None]
  - Transfusion [None]

NARRATIVE: CASE EVENT DATE: 20220301
